FAERS Safety Report 13033318 (Version 1)
Quarter: 2016Q4

REPORT INFORMATION
  Report Type: Spontaneous
  Country: FR (occurrence: FR)
  Receive Date: 20161216
  Receipt Date: 20161216
  Transmission Date: 20170207
  Serious: Yes (Death, Hospitalization, Other)
  Sender: FDA-Public Use
  Company Number: FR-BRISTOL-MYERS SQUIBB COMPANY-BMS-2016-105295

PATIENT
  Age: 74 Year
  Sex: Female

DRUGS (1)
  1. YERVOY [Suspect]
     Active Substance: IPILIMUMAB
     Indication: MALIGNANT MELANOMA
     Dosage: 3 MG/KG, Q3WK
     Route: 042
     Dates: start: 20160428, end: 20160630

REACTIONS (6)
  - Vomiting [Recovered/Resolved]
  - General physical health deterioration [Fatal]
  - Nausea [Recovered/Resolved]
  - Cardiac failure [Fatal]
  - Colitis [Recovered/Resolved]
  - Oedema peripheral [Unknown]

NARRATIVE: CASE EVENT DATE: 201606
